FAERS Safety Report 9019498 (Version 1)
Quarter: 2013Q1

REPORT INFORMATION
  Report Type: Spontaneous
  Country: CA (occurrence: CA)
  Receive Date: 20130118
  Receipt Date: 20130118
  Transmission Date: 20140127
  Serious: Yes (Hospitalization, Other)
  Sender: FDA-Public Use
  Company Number: CA-AMGEN-CANSP2013001702

PATIENT
  Age: 66 Year
  Sex: Female

DRUGS (6)
  1. SENSIPAR [Suspect]
     Indication: RENAL IMPAIRMENT
     Dosage: UNK
     Dates: start: 20110524
  2. ROCALTROL [Concomitant]
  3. ONDANSETRON [Concomitant]
  4. CODEINE [Concomitant]
  5. DILAUDID [Concomitant]
  6. PANTOPRAZOLE [Concomitant]

REACTIONS (10)
  - Gastrointestinal haemorrhage [Recovered/Resolved]
  - Intestinal obstruction [Recovered/Resolved]
  - Food intolerance [Recovered/Resolved]
  - Nausea [Not Recovered/Not Resolved]
  - Vomiting [Not Recovered/Not Resolved]
  - Hypotension [Recovered/Resolved]
  - Hospitalisation [Recovered/Resolved]
  - Pneumonia [Recovered/Resolved]
  - Gastrointestinal fungal infection [Recovered/Resolved]
  - Device related infection [Recovered/Resolved]
